FAERS Safety Report 8965709 (Version 1)
Quarter: 2012Q4

REPORT INFORMATION
  Report Type: Spontaneous
  Country: US (occurrence: None)
  Receive Date: 20121212
  Receipt Date: 20121212
  Transmission Date: 20130627
  Serious: No
  Sender: FDA-Public Use
  Company Number: None

PATIENT
  Age: 76 Year
  Sex: Female
  Weight: 96.16 kg

DRUGS (1)
  1. RECLAST [Suspect]
     Indication: OSTEOPOROSIS
     Dosage: Infusion
     Dates: start: 20121116, end: 20121116

REACTIONS (9)
  - Pyrexia [None]
  - Headache [None]
  - Nausea [None]
  - Retching [None]
  - Decreased appetite [None]
  - Arthralgia [None]
  - Pain in extremity [None]
  - Muscular weakness [None]
  - Fall [None]
